FAERS Safety Report 24079105 (Version 7)
Quarter: 2024Q3

REPORT INFORMATION
  Report Type: Spontaneous
  Country: AR (occurrence: AR)
  Receive Date: 20240711
  Receipt Date: 20240924
  Transmission Date: 20241016
  Serious: No
  Sender: PFIZER
  Company Number: AR-PFIZER INC-202400205904

PATIENT
  Age: 20 Year
  Sex: Female

DRUGS (1)
  1. GENOTROPIN [Suspect]
     Active Substance: SOMATROPIN
     Indication: Growth hormone deficiency
     Dosage: 1.4 MG, DAILY, 7 TIMES A WEEK
     Dates: start: 20210415, end: 20231230

REACTIONS (7)
  - Drug dose omission by device [Unknown]
  - Device mechanical issue [Not Recovered/Not Resolved]
  - Device use error [Not Recovered/Not Resolved]
  - Device power source issue [Unknown]
  - Device malfunction [Unknown]
  - Device information output issue [Unknown]
  - Expired device used [Unknown]

NARRATIVE: CASE EVENT DATE: 20240701
